FAERS Safety Report 8993149 (Version 1)
Quarter: 2013Q1

REPORT INFORMATION
  Report Type: Spontaneous
  Country: IT (occurrence: IT)
  Receive Date: 20130102
  Receipt Date: 20130102
  Transmission Date: 20140127
  Serious: Yes (Death, Hospitalization)
  Sender: FDA-Public Use
  Company Number: PHHY2012IT121485

PATIENT
  Age: 23 Year
  Sex: Male

DRUGS (2)
  1. CLARITHROMYCIN [Suspect]
     Indication: OROPHARYNGEAL PAIN
     Dosage: 1 DF, PER DAY
  2. CLARITHROMYCIN [Suspect]
     Dosage: 2 G, UNK

REACTIONS (11)
  - Hepatitis fulminant [Fatal]
  - Vomiting [Fatal]
  - Subarachnoid haemorrhage [Unknown]
  - Confusional state [Unknown]
  - Unresponsive to stimuli [Unknown]
  - Restlessness [Unknown]
  - Hypotension [Unknown]
  - Diarrhoea [Unknown]
  - Pyrexia [Unknown]
  - Epistaxis [Unknown]
  - Dyspnoea [Unknown]
